FAERS Safety Report 19651499 (Version 2)
Quarter: 2021Q3

REPORT INFORMATION
  Report Type: Spontaneous
  Country: US (occurrence: US)
  Receive Date: 20210803
  Receipt Date: 20210820
  Transmission Date: 20211014
  Serious: Yes (Hospitalization)
  Sender: FDA-Public Use
  Company Number: US-COLLEGIUM PHARMACEUTICAL, INC.-2021CGM00817

PATIENT
  Age: 48 Year
  Sex: Male
  Weight: 105 kg

DRUGS (3)
  1. OXYCODONE IR [Suspect]
     Active Substance: OXYCODONE
  2. XTAMPZA ER [Suspect]
     Active Substance: OXYCODONE
     Indication: FIBROMYALGIA
  3. XTAMPZA ER [Suspect]
     Active Substance: OXYCODONE
     Indication: PAIN
     Dosage: 36 MG, 2X/DAY
     Route: 048
     Dates: start: 20200401

REACTIONS (2)
  - Overdose [Recovered/Resolved]
  - Major depression [Recovering/Resolving]

NARRATIVE: CASE EVENT DATE: 20210617
